FAERS Safety Report 5074995-X (Version None)
Quarter: 2006Q3

REPORT INFORMATION
  Report Type: 
  Country: None (occurrence: None)
  Receive Date: 20060804
  Receipt Date: 20060720
  Transmission Date: 20061208
  Serious: Yes (Hospitalization)
  Sender: FDA-Public Use
  Company Number: US017234

PATIENT
  Age: 22 Year
  Sex: Male

DRUGS (4)
  1. ACTIQ (SUGAR-FREE) [Suspect]
     Indication: PROCEDURAL PAIN
     Dates: start: 20041024
  2. FENTANYL [Concomitant]
  3. ALPRAZOLAM [Concomitant]
  4. ESCITALOPRAM [Concomitant]

REACTIONS (10)
  - CONFUSIONAL STATE [None]
  - DYSARTHRIA [None]
  - HYPERTENSION [None]
  - INCORRECT DOSE ADMINISTERED [None]
  - INTENTIONAL DRUG MISUSE [None]
  - LETHARGY [None]
  - MENTAL STATUS CHANGES [None]
  - PNEUMONIA [None]
  - PNEUMONITIS [None]
  - TACHYCARDIA [None]
